FAERS Safety Report 9249907 (Version 3)
Quarter: 2013Q3

REPORT INFORMATION
  Report Type: Spontaneous
  Country: US (occurrence: US)
  Receive Date: 20130423
  Receipt Date: 20130812
  Transmission Date: 20140515
  Serious: Yes (Other)
  Sender: FDA-Public Use
  Company Number: US-009507513-1304USA011973

PATIENT
  Sex: Male

DRUGS (6)
  1. VICTRELIS [Suspect]
     Indication: HEPATITIS C
     Dosage: UNK
     Dates: start: 20130206, end: 2013
  2. VICTRELIS [Suspect]
     Dosage: UNK
     Dates: start: 20130306
  3. PEGASYS [Suspect]
     Indication: HEPATITIS C
     Dosage: UNK
     Dates: start: 20130106, end: 2013
  4. PEGASYS [Suspect]
     Dosage: UNK
     Dates: start: 20130206
  5. REBETOL [Suspect]
     Indication: HEPATITIS C
     Dosage: UNK
     Dates: start: 20130106, end: 2013
  6. REBETOL [Suspect]
     Dosage: UNK
     Dates: start: 20130206

REACTIONS (11)
  - Arrhythmia [Recovered/Resolved]
  - Arrhythmia [Unknown]
  - Dry eye [Unknown]
  - Glossodynia [Unknown]
  - Neutropenia [Unknown]
  - Insomnia [Unknown]
  - Neutrophil count decreased [Unknown]
  - Neutrophil count decreased [Not Recovered/Not Resolved]
  - Neutropenia [Not Recovered/Not Resolved]
  - White blood cell count decreased [Not Recovered/Not Resolved]
  - Leukopenia [Not Recovered/Not Resolved]
